FAERS Safety Report 8059873-6 (Version None)
Quarter: 2012Q1

REPORT INFORMATION
  Report Type: 
  Country: None (occurrence: None)
  Receive Date: 20120120
  Receipt Date: 20120105
  Transmission Date: 20120608
  Serious: Yes (Hospitalization)
  Sender: FDA-Public Use
  Company Number: US-MYLANLABS-2011S1000185

PATIENT
  Age: 11 Year
  Sex: Male

DRUGS (45)
  1. DIAZEPAM [Suspect]
     Route: 048
     Dates: start: 20100702, end: 20100722
  2. STREPTOCOCCUS FAECALIS [Suspect]
     Route: 048
     Dates: start: 20100711, end: 20100718
  3. LANSOPRAZOLE [Suspect]
     Route: 048
     Dates: start: 20100628, end: 20100728
  4. FAMOTIDINE [Suspect]
     Route: 041
     Dates: start: 20100617, end: 20100626
  5. MIDAZOLAM [Suspect]
     Route: 041
     Dates: start: 20100621, end: 20100621
  6. ATROPINE SULFATE [Suspect]
     Route: 041
     Dates: start: 20100617, end: 20100622
  7. CLINDAMYCIN PHOSPHATE [Suspect]
     Route: 042
     Dates: start: 20100708, end: 20100710
  8. BIOFERMIN T [Suspect]
     Route: 048
     Dates: start: 20100711, end: 20100718
  9. SODIUM PICOSULFATE [Suspect]
     Route: 048
     Dates: start: 20100620, end: 20100620
  10. LIDOCAINE [Suspect]
     Route: 041
     Dates: start: 20100621, end: 20100709
  11. OFLOXACIN [Suspect]
     Route: 047
     Dates: start: 20100728, end: 20100729
  12. ETIZOLAM [Suspect]
     Dosage: UNIT CONT:1
     Route: 048
     Dates: start: 20100701, end: 20100701
  13. DIAZEPAM [Suspect]
     Route: 048
     Dates: start: 20100622, end: 20100701
  14. CEFAZOLIN [Suspect]
     Route: 041
     Dates: start: 20100622, end: 20100624
  15. HEPARIN SODIUM [Suspect]
     Route: 041
     Dates: start: 20100617
  16. NICARDIPINE HYDROCHLORIDE [Suspect]
     Route: 041
     Dates: start: 20100622, end: 20100624
  17. GLYCEROL 2.6% [Suspect]
     Indication: CONSTIPATION
     Route: 054
     Dates: start: 20100621
  18. MORPHINE HCL ELIXIR [Suspect]
     Route: 041
     Dates: start: 20100621, end: 20100709
  19. PHENOBARBITAL TAB [Suspect]
     Route: 048
     Dates: start: 20100622, end: 20100709
  20. PIPERACILLIN SODIUM [Suspect]
     Route: 041
     Dates: start: 20100715, end: 20100716
  21. TRICLOFOS SODIUM [Suspect]
     Route: 048
     Dates: start: 20100628, end: 20100705
  22. HEPARIN SODIUM [Suspect]
     Route: 041
     Dates: start: 20100808, end: 20100812
  23. FENTANYL [Suspect]
     Route: 041
     Dates: start: 20100621, end: 20100708
  24. DEXMEDETOMIDINE HYDROCHLORIDE [Suspect]
     Route: 041
     Dates: start: 20100704, end: 20100705
  25. FLURBIPROFEN [Suspect]
     Route: 041
     Dates: start: 20100709, end: 20100709
  26. ULTIVA [Suspect]
     Route: 042
     Dates: start: 20100621, end: 20100708
  27. ACETAMINOPHEN [Suspect]
     Route: 054
     Dates: start: 20100630, end: 20100716
  28. AMPICILLIN [Suspect]
     Route: 041
     Dates: start: 20100715, end: 20100716
  29. ACETAMINOPHEN [Suspect]
     Indication: PYREXIA
     Route: 048
     Dates: start: 20100627, end: 20100716
  30. FUROSEMIDE [Suspect]
     Route: 048
     Dates: start: 20100626, end: 20100706
  31. CALCIUM GLUCONATE [Suspect]
     Route: 041
     Dates: start: 20100621, end: 20100621
  32. FAMOTIDINE [Suspect]
     Route: 048
     Dates: start: 20100626, end: 20100715
  33. NITRAZEPAM [Suspect]
     Route: 041
     Dates: start: 20100617, end: 20100709
  34. CEFTRIAXONE [Suspect]
     Indication: INFECTION
     Route: 041
     Dates: start: 20100630, end: 20100707
  35. RISPERIDONE [Suspect]
     Route: 048
     Dates: start: 20100702, end: 20100714
  36. SPIRONOLACTONE [Suspect]
     Route: 048
     Dates: start: 20100626, end: 20100706
  37. GLYCEROL 2.6% [Suspect]
     Route: 041
     Dates: start: 20100617, end: 20100618
  38. EPINEPHRINE [Suspect]
     Route: 041
     Dates: start: 20100621, end: 20100621
  39. ROCURONIUM BROMIDE [Suspect]
     Route: 041
     Dates: start: 20100617, end: 20100706
  40. DEXPANTHENOL [Suspect]
     Route: 041
     Dates: start: 20100604, end: 20100705
  41. HYALURONATE SODIUM [Suspect]
     Route: 047
     Dates: start: 20100723, end: 20100821
  42. LACTOBACILLUS CASEI [Suspect]
     Route: 048
     Dates: start: 20100702, end: 20100709
  43. OMEPRAZOLE [Suspect]
     Route: 041
     Dates: start: 20100716, end: 20100721
  44. DEXAMETHASONE [Suspect]
     Route: 042
     Dates: start: 20100617, end: 20100622
  45. HYDROXYZINE HCL [Suspect]
     Route: 041
     Dates: start: 20100709, end: 20100709

REACTIONS (1)
  - DRUG RASH WITH EOSINOPHILIA AND SYSTEMIC SYMPTOMS [None]
